FAERS Safety Report 21307173 (Version 1)
Quarter: 2022Q3

REPORT INFORMATION
  Report Type: Spontaneous
  Country: US (occurrence: US)
  Receive Date: 20220908
  Receipt Date: 20220908
  Transmission Date: 20221027
  Serious: Yes (Hospitalization)
  Sender: FDA-Public Use
  Company Number: US-MYLANLABS-2022M1091898

PATIENT
  Age: 20 Year
  Sex: Female

DRUGS (4)
  1. DESMOPRESSIN [Suspect]
     Active Substance: DESMOPRESSIN
     Indication: Diabetes insipidus
     Dosage: 10 MICROGRAM, BID
     Route: 045
  2. DESMOPRESSIN [Suspect]
     Active Substance: DESMOPRESSIN
     Dosage: 20 MICROGRAM, BID
     Route: 045
  3. DESMOPRESSIN [Concomitant]
     Active Substance: DESMOPRESSIN
     Indication: Diabetes insipidus
     Dosage: 2 MICROGRAM
     Route: 058
  4. DEXTROSE [Concomitant]
     Active Substance: DEXTROSE
     Indication: Hyponatraemia
     Dosage: UNK
     Route: 065

REACTIONS (2)
  - Therapy non-responder [Unknown]
  - Rhinitis [Unknown]
